FAERS Safety Report 6763255-4 (Version None)
Quarter: 2010Q2

REPORT INFORMATION
  Report Type: 
  Country: None (occurrence: None)
  Receive Date: 20100610
  Receipt Date: 20100527
  Transmission Date: 20101027
  Serious: Yes (Hospitalization)
  Sender: FDA-Public Use
  Company Number: GB-RANBAXY-2010RR-34338

PATIENT
  Age: 80 Year
  Sex: Female

DRUGS (9)
  1. GLIMEPIRIDE [Suspect]
     Route: 048
  2. ALENDRONIC ACID [Concomitant]
  3. ASPIRIN [Concomitant]
  4. ACETAMINOPHEN AND CODEINE PHOSPHATE [Concomitant]
  5. CYANOCOBALAMIN [Concomitant]
  6. FUROSEMIDE [Concomitant]
  7. LOSARTAN POTASSIUM [Concomitant]
  8. NATECAL D3 [Concomitant]
  9. OMEPRAZOLE [Concomitant]

REACTIONS (2)
  - DEPRESSED LEVEL OF CONSCIOUSNESS [None]
  - HYPOGLYCAEMIA [None]
